FAERS Safety Report 7833278-2 (Version None)
Quarter: 2011Q4

REPORT INFORMATION
  Report Type: 
  Country: None (occurrence: None)
  Receive Date: 20111024
  Receipt Date: 20111020
  Transmission Date: 20120403
  Serious: Yes (Other)
  Sender: FDA-Public Use
  Company Number: DE-PFIZER INC-2011180746

PATIENT
  Age: 49 Year
  Sex: Male

DRUGS (16)
  1. LORAZEPAM [Suspect]
     Indication: AFFECT LABILITY
  2. DIAZEPAM [Concomitant]
  3. LORAZEPAM [Suspect]
     Indication: PANIC DISORDER
     Dosage: 1 MG, 3X/DAY
  4. LORAZEPAM [Suspect]
     Indication: DEPRESSION
     Dosage: 3 OR 4 MG
  5. ZOPICLONE [Suspect]
     Dosage: 7.5
  6. PROMETHAZINE HCL [Concomitant]
  7. SEROQUEL [Suspect]
     Dosage: 1000 MG, 1X/DAY
  8. SEROQUEL [Suspect]
     Dosage: 500 MG
  9. SEROQUEL [Suspect]
     Dosage: 800
  10. LORAZEPAM [Suspect]
     Indication: POST-TRAUMATIC STRESS DISORDER
  11. LORAZEPAM [Suspect]
     Indication: SEDATION
  12. LORAZEPAM [Suspect]
     Indication: HISTRIONIC PERSONALITY DISORDER
     Dosage: MAX. 4 MG DAILY
     Route: 048
     Dates: start: 20101202
  13. VENLAFAXINE HCL [Suspect]
     Dosage: 225 MG
  14. ZOPICLONE [Suspect]
     Dosage: 10
  15. INDOMETHACIN [Concomitant]
     Dosage: 100 MG, 3X/DAY
  16. VENLAFAXINE HCL [Suspect]
     Dosage: 75

REACTIONS (11)
  - NIGHTMARE [None]
  - COLD SWEAT [None]
  - HEADACHE [None]
  - INSOMNIA [None]
  - ARTHRALGIA [None]
  - AMNESIA [None]
  - CONSTIPATION [None]
  - DIZZINESS [None]
  - DRUG DEPENDENCE [None]
  - WITHDRAWAL SYNDROME [None]
  - SKIN FISSURES [None]
